FAERS Safety Report 22524715 (Version 1)
Quarter: 2023Q2

REPORT INFORMATION
  Report Type: Spontaneous
  Country: US (occurrence: None)
  Receive Date: 20230606
  Receipt Date: 20230606
  Transmission Date: 20230722
  Serious: No
  Sender: FDA-Public Use
  Company Number: 2023A116878

PATIENT
  Sex: Female
  Weight: 68 kg

DRUGS (1)
  1. BREZTRI [Suspect]
     Active Substance: BUDESONIDE\FORMOTEROL\GLYCOPYRROLATE
     Indication: Chronic obstructive pulmonary disease
     Dosage: 2 UNKNOWN DOSE UNIT DAILY
     Route: 055

REACTIONS (7)
  - Dyspnoea [Recovering/Resolving]
  - Paranasal sinus hypersecretion [Unknown]
  - Ear pain [Unknown]
  - Dyspepsia [Unknown]
  - Dizziness [Unknown]
  - Chest pain [Unknown]
  - Adrenal disorder [Unknown]
